FAERS Safety Report 25807215 (Version 1)
Quarter: 2025Q3

REPORT INFORMATION
  Report Type: Spontaneous
  Country: EU (occurrence: EU)
  Receive Date: 20250916
  Receipt Date: 20250916
  Transmission Date: 20251021
  Serious: Yes (Other)
  Sender: BAUSCH AND LOMB
  Company Number: None

PATIENT
  Age: 59 Year
  Sex: Female

DRUGS (9)
  1. DEXAMETHASONE [Suspect]
     Active Substance: DEXAMETHASONE
     Indication: Plasma cell myeloma
     Dosage: 20 MG/DOSE 4 DOSES/WEEK 2 WEEKS/CYCLE
     Route: 065
     Dates: end: 20211126
  2. DEXAMETHASONE [Suspect]
     Active Substance: DEXAMETHASONE
     Route: 065
  3. BORTEZOMIB [Suspect]
     Active Substance: BORTEZOMIB
     Indication: Plasma cell myeloma
     Dosage: 2 DOSES/WEEK 2 WEEKS/CYCLE
     Route: 065
     Dates: end: 20211126
  4. BORTEZOMIB [Suspect]
     Active Substance: BORTEZOMIB
     Route: 065
  5. LENALIDOMIDE [Suspect]
     Active Substance: LENALIDOMIDE
     Indication: Plasma cell myeloma
     Dosage: 25 MG/DOSE 7 DOSES/WEEK 2 WEEKS/CYCLE
     Route: 065
     Dates: end: 20211126
  6. LENALIDOMIDE [Suspect]
     Active Substance: LENALIDOMIDE
     Dosage: MAINTENANCE: LENALIDOMIDE 10 MG/DOSE 3 DOSES/WEEK 3 WEEKS/CYCLE
     Route: 065
     Dates: end: 20211126
  7. LENALIDOMIDE [Suspect]
     Active Substance: LENALIDOMIDE
     Route: 065
  8. MELPHALAN [Suspect]
     Active Substance: MELPHALAN
     Indication: Plasma cell myeloma
     Dosage: 200 MG/M2/DOSE 1 DOSE/WEEK 1 WEEK/CYCLE
     Route: 065
     Dates: end: 20211126
  9. MELPHALAN [Suspect]
     Active Substance: MELPHALAN
     Route: 065

REACTIONS (2)
  - Neutropenia [Unknown]
  - Intentional product use issue [Unknown]

NARRATIVE: CASE EVENT DATE: 20190228
